FAERS Safety Report 24221106 (Version 1)
Quarter: 2024Q3

REPORT INFORMATION
  Report Type: Spontaneous
  Country: EG (occurrence: EG)
  Receive Date: 20240819
  Receipt Date: 20240819
  Transmission Date: 20241017
  Serious: Yes (Other)
  Sender: JOHNSON AND JOHNSON
  Company Number: EG-JNJFOC-20240828192

PATIENT
  Age: 38 Year
  Sex: Male

DRUGS (1)
  1. REMICADE [Suspect]
     Active Substance: INFLIXIMAB
     Indication: Crohn^s disease
     Route: 041

REACTIONS (5)
  - Colonic abscess [Unknown]
  - Fistula of small intestine [Unknown]
  - Crohn^s disease [Not Recovered/Not Resolved]
  - Vision blurred [Unknown]
  - Fatigue [Unknown]
